FAERS Safety Report 8927537 (Version 2)
Quarter: 2012Q4

REPORT INFORMATION
  Report Type: Report from Study
  Country: DE (occurrence: DE)
  Receive Date: 20121127
  Receipt Date: 20121210
  Transmission Date: 20130627
  Serious: Yes (Other)
  Sender: FDA-Public Use
  Company Number: PHHY2012DE108279

PATIENT
  Sex: Male

DRUGS (2)
  1. FTY 720 [Suspect]
     Indication: MULTIPLE SCLEROSIS
     Dosage: 0.5 mg, QD
     Route: 048
     Dates: start: 20110310, end: 20121122
  2. FRAXIPARIN [Concomitant]
     Dosage: UNK UKN, UNK
     Route: 058
     Dates: start: 20121107

REACTIONS (1)
  - Lymphopenia [Not Recovered/Not Resolved]
